FAERS Safety Report 11742954 (Version 3)
Quarter: 2015Q4

REPORT INFORMATION
  Report Type: Spontaneous
  Country: FR (occurrence: FR)
  Receive Date: 20151116
  Receipt Date: 20151223
  Transmission Date: 20160304
  Serious: Yes (Death, Congenital Anomaly)
  Sender: FDA-Public Use
  Company Number: FR-GUERBET LLC-1044237

PATIENT
  Sex: Male

DRUGS (1)
  1. DOTAREM [Suspect]
     Active Substance: GADOTERATE MEGLUMINE
     Indication: NUCLEAR MAGNETIC RESONANCE IMAGING
     Route: 064

REACTIONS (5)
  - Cleft lip and palate [Fatal]
  - Hypoplastic nasal cartilage [Fatal]
  - Diverticulum [Fatal]
  - Hemivertebra [Fatal]
  - Abortion induced [Fatal]
